FAERS Safety Report 20052107 (Version 2)
Quarter: 2021Q4

REPORT INFORMATION
  Report Type: Spontaneous
  Country: JP (occurrence: JP)
  Receive Date: 20211110
  Receipt Date: 20211119
  Transmission Date: 20220303
  Serious: Yes (Hospitalization, Other)
  Sender: FDA-Public Use
  Company Number: JP-ASTELLAS-2021JP020413

PATIENT
  Age: 72 Year
  Sex: Female

DRUGS (5)
  1. PROGRAF [Suspect]
     Active Substance: TACROLIMUS
     Indication: Systemic lupus erythematosus
     Dosage: 2 MG/DAY, UNKNOWN FREQ.
     Route: 048
     Dates: end: 20211018
  2. PROGRAF [Suspect]
     Active Substance: TACROLIMUS
     Indication: Lupus nephritis
     Dosage: 2 MG/DAY, UNKNOWN FREQ.
     Route: 048
     Dates: start: 20211025
  3. PROGRAF [Suspect]
     Active Substance: TACROLIMUS
     Indication: Rheumatoid arthritis
  4. PREDONINE [Suspect]
     Active Substance: PREDNISOLONE
     Indication: Product used for unknown indication
     Dosage: 5 MG/DAY, UNKNOWN FREQ.
     Route: 048
  5. SULFASALAZINE [Suspect]
     Active Substance: SULFASALAZINE
     Indication: Product used for unknown indication
     Dosage: 1000 MG/DAY, UNKNOWN FREQ.
     Route: 048

REACTIONS (2)
  - General physical health deterioration [Unknown]
  - Aortic aneurysm rupture [Recovering/Resolving]

NARRATIVE: CASE EVENT DATE: 20211019
